FAERS Safety Report 6557841-4 (Version None)
Quarter: 2010Q1

REPORT INFORMATION
  Report Type: 
  Country: None (occurrence: None)
  Receive Date: 20100129
  Receipt Date: 20100120
  Transmission Date: 20100710
  Serious: Yes (Hospitalization)
  Sender: FDA-Public Use
  Company Number: IL-MEDIMMUNE-MEDI-0010316

PATIENT
  Age: 8 Month
  Sex: Male
  Weight: 1.5 kg

DRUGS (1)
  1. SYNAGIS [Suspect]
     Route: 030
     Dates: start: 20091109, end: 20091109

REACTIONS (5)
  - COUGH [None]
  - OXYGEN SATURATION DECREASED [None]
  - PYREXIA [None]
  - RESPIRATORY SYNCYTIAL VIRUS BRONCHIOLITIS [None]
  - RESPIRATORY SYNCYTIAL VIRUS INFECTION [None]
